FAERS Safety Report 7728846-2 (Version None)
Quarter: 2011Q3

REPORT INFORMATION
  Report Type: 
  Country: None (occurrence: None)
  Receive Date: 20110831
  Receipt Date: 20110831
  Transmission Date: 20111222
  Serious: Yes (Other)
  Sender: FDA-Public Use
  Company Number: None

PATIENT
  Sex: Female
  Weight: 56.6996 kg

DRUGS (1)
  1. DEXILANT [Suspect]
     Indication: ULCER
     Dosage: 60MG 1 A DAY

REACTIONS (3)
  - ANGINA PECTORIS [None]
  - HEART RATE INCREASED [None]
  - DYSPNOEA [None]
